FAERS Safety Report 11054571 (Version 1)
Quarter: 2015Q2

REPORT INFORMATION
  Report Type: Spontaneous
  Country: FR (occurrence: FR)
  Receive Date: 20150422
  Receipt Date: 20150422
  Transmission Date: 20150821
  Serious: Yes (Hospitalization, Other)
  Sender: FDA-Public Use
  Company Number: FR-JNJFOC-2005037260

PATIENT
  Age: 78 Year
  Sex: Female

DRUGS (15)
  1. ATARAX [Suspect]
     Active Substance: HYDROXYZINE\HYDROXYZINE HYDROCHLORIDE
     Indication: ILL-DEFINED DISORDER
     Dosage: DAILY DOSE QTY: 25 MG
     Route: 048
     Dates: start: 20040810
  2. EQUANIL [Concomitant]
     Active Substance: MEPROBAMATE
     Indication: DEMENTIA
     Dosage: DAILY DOSE QTY: 400 MG
     Route: 048
     Dates: start: 20040803, end: 20040820
  3. ACETAMINOPHEN. [Suspect]
     Active Substance: ACETAMINOPHEN
     Indication: FEMUR FRACTURE
     Dosage: DAILY DOSE QTY: 3 G
     Route: 048
     Dates: start: 20040807
  4. LOVENOX [Concomitant]
     Active Substance: ENOXAPARIN SODIUM
     Route: 065
     Dates: start: 20040808, end: 20040817
  5. TERCIAN [Concomitant]
     Active Substance: CYAMEMAZINE
     Dosage: DAILY DOSE QTY: 75 MG
     Route: 048
     Dates: start: 20040804
  6. FOLIC ACID. [Concomitant]
     Active Substance: FOLIC ACID
     Indication: PRODUCT USED FOR UNKNOWN INDICATION
     Dosage: DAILY DOSE QTY: 10 MG
     Route: 048
     Dates: start: 20040710
  7. KETOPROFEN. [Suspect]
     Active Substance: KETOPROFEN
     Indication: FEMUR FRACTURE
     Dosage: DAILY DOSE QTY: 50 MG
     Route: 048
     Dates: start: 20040808, end: 20040817
  8. VITAMIN B6 [Concomitant]
     Active Substance: PYRIDOXINE HYDROCHLORIDE
     Indication: PERNICIOUS ANAEMIA
     Route: 065
     Dates: start: 20040710
  9. ANEXATE [Concomitant]
     Active Substance: FLUMAZENIL
     Route: 065
  10. PANTOPRAZOLE SODIUM. [Suspect]
     Active Substance: PANTOPRAZOLE SODIUM
     Indication: MELAENA
     Dosage: DAILY DOSE QTY: 40 MG
     Route: 048
     Dates: start: 20040714
  11. ACETAMINOPHEN. [Suspect]
     Active Substance: ACETAMINOPHEN
     Route: 048
  12. AMOXICILLIN AND CLAVULANATE POTASSIUM [Suspect]
     Active Substance: AMOXICILLIN\CLAVULANATE POTASSIUM
     Indication: PYREXIA
     Dosage: DAILY DOSE QTY: 3 G
     Route: 048
     Dates: start: 20040716, end: 20040725
  13. TRANXENE T-TAB [Concomitant]
     Active Substance: CLORAZEPATE DIPOTASSIUM
     Indication: DEMENTIA
     Route: 048
     Dates: end: 20040720
  14. AMOXICILLIN AND CLAVULANATE POTASSIUM [Suspect]
     Active Substance: AMOXICILLIN\CLAVULANATE POTASSIUM
     Indication: LUNG DISORDER
     Dosage: DAILY DOSE QTY: 3 G
     Route: 048
     Dates: start: 20040716, end: 20040725
  15. VITAMIN B1 [Concomitant]
     Active Substance: THIAMINE HYDROCHLORIDE
     Indication: PERNICIOUS ANAEMIA
     Route: 065
     Dates: start: 20040710

REACTIONS (6)
  - Blood alkaline phosphatase increased [Unknown]
  - Femur fracture [Unknown]
  - Gamma-glutamyltransferase increased [Unknown]
  - Fall [Unknown]
  - Hepatitis cholestatic [Unknown]
  - Overdose [Unknown]

NARRATIVE: CASE EVENT DATE: 20040719
